FAERS Safety Report 22041370 (Version 1)
Quarter: 2023Q1

REPORT INFORMATION
  Report Type: Spontaneous
  Country: US (occurrence: None)
  Receive Date: 20230224
  Receipt Date: 20230224
  Transmission Date: 20230418
  Serious: No
  Sender: FDA-Public Use
  Company Number: None

PATIENT
  Sex: Female

DRUGS (1)
  1. NUCALA [Suspect]
     Active Substance: MEPOLIZUMAB
     Indication: Asthma
     Dosage: 100 MG EVERY 30 DAYS UNDER THE SKIN?
     Route: 058
     Dates: start: 202204

REACTIONS (3)
  - Drug ineffective [None]
  - Arthralgia [None]
  - Joint swelling [None]
